FAERS Safety Report 7653627-8 (Version None)
Quarter: 2011Q3

REPORT INFORMATION
  Report Type: 
  Country: None (occurrence: None)
  Receive Date: 20110803
  Receipt Date: 20110803
  Transmission Date: 20111222
  Serious: Yes (Life-Threatening, Hospitalization)
  Sender: FDA-Public Use
  Company Number: None

PATIENT
  Age: 54 Year
  Sex: Female
  Weight: 61.688 kg

DRUGS (2)
  1. JINTELI [Suspect]
     Indication: HOT FLUSH
     Dosage: 1 TABLET
     Route: 048
     Dates: start: 20110617, end: 20110730
  2. JINTELI [Suspect]
     Indication: AFFECTIVE DISORDER
     Dosage: 1 TABLET
     Route: 048
     Dates: start: 20110617, end: 20110730

REACTIONS (2)
  - PRODUCT SUBSTITUTION ISSUE [None]
  - CEREBROVASCULAR ACCIDENT [None]
